FAERS Safety Report 19487130 (Version 1)
Quarter: 2021Q3

REPORT INFORMATION
  Report Type: Spontaneous
  Country: US (occurrence: US)
  Receive Date: 20210702
  Receipt Date: 20210702
  Transmission Date: 20211014
  Serious: Yes (Hospitalization)
  Sender: FDA-Public Use
  Company Number: US-MYLANLABS-2021M1038518

PATIENT
  Age: 38 Year
  Sex: Male

DRUGS (1)
  1. PARACETAMOL [Suspect]
     Active Substance: ACETAMINOPHEN
     Indication: PRODUCT USED FOR UNKNOWN INDICATION
     Dosage: 200 DOSAGE FORM
     Route: 065

REACTIONS (5)
  - Haemolytic anaemia [Recovering/Resolving]
  - Transaminases increased [Unknown]
  - Intentional overdose [Recovering/Resolving]
  - Renal impairment [Recovered/Resolved]
  - Methaemoglobinaemia [Recovering/Resolving]
